FAERS Safety Report 4618762-7 (Version None)
Quarter: 2005Q1

REPORT INFORMATION
  Report Type: 
  Country: None (occurrence: None)
  Receive Date: 20050323
  Receipt Date: 20050314
  Transmission Date: 20050727
  Serious: Yes (Other)
  Sender: FDA-Public Use
  Company Number: 2005045468

PATIENT
  Age: 72 Year
  Sex: Male
  Weight: 98.8842 kg

DRUGS (5)
  1. NEURONTIN [Suspect]
     Indication: TREMOR
     Dosage: 300 MG (100 MG, 3 IN 1 D), ORAL
     Route: 048
  2. GLIPIZIDE 9GLIPIZIDE0 [Concomitant]
  3. METFORMIN HYDROCHLORIDE (METFROMIN HYDROCHLORIDE0 [Concomitant]
  4. ATORVASTATIN (ATORVASTTIN) [Concomitant]
  5. ENALAPRIL MALEATE [Concomitant]

REACTIONS (3)
  - PAIN IN EXTREMITY [None]
  - PERIPHERAL COLDNESS [None]
  - PROSTATE CANCER [None]
